FAERS Safety Report 25346710 (Version 1)
Quarter: 2025Q2

REPORT INFORMATION
  Report Type: Spontaneous
  Country: US (occurrence: None)
  Receive Date: 20250521
  Receipt Date: 20250521
  Transmission Date: 20250717
  Serious: Yes (Death)
  Sender: FDA-CTU
  Company Number: None

PATIENT
  Age: 66 Year
  Sex: Female

DRUGS (1)
  1. POMALYST [Suspect]
     Active Substance: POMALIDOMIDE
     Indication: Plasma cell myeloma
     Dosage: FREQUENCY : DAILY;?
     Route: 048
     Dates: start: 20250214, end: 20250313

REACTIONS (5)
  - Asthenia [None]
  - Fall [None]
  - Head injury [None]
  - Atrial fibrillation [None]
  - Cardio-respiratory arrest [None]

NARRATIVE: CASE EVENT DATE: 20250313
